FAERS Safety Report 23989895 (Version 1)
Quarter: 2024Q2

REPORT INFORMATION
  Report Type: Spontaneous
  Country: CN (occurrence: CN)
  Receive Date: 20240619
  Receipt Date: 20240619
  Transmission Date: 20240716
  Serious: Yes (Hospitalization, Disabling)
  Sender: FDA-Public Use
  Company Number: CN-PFIZER INC-PV202400078114

PATIENT
  Age: 62 Year
  Sex: Male
  Weight: 55 kg

DRUGS (4)
  1. EPIRUBICIN HYDROCHLORIDE [Suspect]
     Active Substance: EPIRUBICIN HYDROCHLORIDE
     Indication: Symptomatic treatment
     Dosage: 30 MG, 1X/DAY
     Dates: start: 20240515, end: 20240515
  2. OXALIPLATIN [Suspect]
     Active Substance: OXALIPLATIN
     Indication: Symptomatic treatment
     Dosage: 150 MG, 1X/DAY
     Dates: start: 20240515, end: 20240515
  3. IODINE [Concomitant]
     Active Substance: IODINE
     Indication: Symptomatic treatment
     Dosage: 6 ML, 1X/DAY
     Dates: start: 20240515, end: 20240515
  4. DEXTROSE [Concomitant]
     Active Substance: DEXTROSE\DEXTROSE MONOHYDRATE
     Indication: Symptomatic treatment
     Dosage: 30 ML, 1X/DAY
     Dates: start: 20240515, end: 20240515

REACTIONS (3)
  - Hepatic function abnormal [Recovering/Resolving]
  - Abdominal distension [Recovering/Resolving]
  - Abdominal pain [Recovering/Resolving]

NARRATIVE: CASE EVENT DATE: 20240518
